FAERS Safety Report 23976044 (Version 1)
Quarter: 2024Q2

REPORT INFORMATION
  Report Type: Spontaneous
  Country: GB (occurrence: GB)
  Receive Date: 20240614
  Receipt Date: 20240614
  Transmission Date: 20240716
  Serious: Yes (Other)
  Sender: FDA-Public Use
  Company Number: GB-MHRA-TPP10940841C2182674YC1718115117278

PATIENT
  Age: 79 Year
  Sex: Female
  Weight: 56 kg

DRUGS (5)
  1. SIMVASTATIN [Suspect]
     Active Substance: SIMVASTATIN
     Indication: Ill-defined disorder
     Dosage: UNK
     Route: 065
     Dates: start: 20240611
  2. SIMVASTATIN [Concomitant]
     Active Substance: SIMVASTATIN
     Indication: Ill-defined disorder
     Dosage: 1 DOSAGE FORM, QD (TAKE ONE AT NIGHT)
     Route: 065
     Dates: start: 20220825, end: 20240611
  3. CLOPIDOGREL [Concomitant]
     Active Substance: CLOPIDOGREL BISULFATE
     Indication: Ill-defined disorder
     Dosage: 1 DOSAGE FORM, QD (TAKE ONE ONCE DAILY)
     Route: 065
     Dates: start: 20240116
  4. ACETAMINOPHEN [Concomitant]
     Active Substance: ACETAMINOPHEN
     Indication: Ill-defined disorder
     Dosage: QID (1-2 FOUR TIMES A DAY WHEN REQUIRED)
     Route: 065
     Dates: start: 20240116
  5. RAMIPRIL [Concomitant]
     Active Substance: RAMIPRIL
     Indication: Ill-defined disorder
     Dosage: 2 DOSAGE FORM, QD (TAKE TWO CAPSULES A DAY AS PER HOSPITAL LETTER)
     Route: 065
     Dates: start: 20240306

REACTIONS (1)
  - Muscle discomfort [Recovered/Resolved]

NARRATIVE: CASE EVENT DATE: 20240611
